FAERS Safety Report 4863323-8 (Version None)
Quarter: 2005Q4

REPORT INFORMATION
  Report Type: 
  Country: None (occurrence: None)
  Receive Date: 20051219
  Receipt Date: 20051202
  Transmission Date: 20060501
  Serious: Yes (Life-Threatening, Hospitalization)
  Sender: FDA-Public Use
  Company Number: MC200501052

PATIENT
  Age: 70 Year
  Sex: Male

DRUGS (1)
  1. ANGIOMAX [Suspect]
     Dates: start: 20051019, end: 20051019

REACTIONS (5)
  - CHEST PAIN [None]
  - CORONARY ARTERY DISSECTION [None]
  - CORONARY ARTERY THROMBOSIS [None]
  - ELECTROCARDIOGRAM ST SEGMENT ELEVATION [None]
  - THROMBOSIS IN DEVICE [None]
